FAERS Safety Report 8141136-1 (Version None)
Quarter: 2012Q1

REPORT INFORMATION
  Report Type: 
  Country: None (occurrence: None)
  Receive Date: 20120103
  Receipt Date: 20111005
  Transmission Date: 20120608
  Serious: No
  Sender: FDA-Public Use
  Company Number: AE-2011-001504

PATIENT
  Age: 57 Year
  Sex: Female
  Weight: 53.5244 kg

DRUGS (4)
  1. INCIVEK [Suspect]
     Dosage: 2250 MG (750 MG, 3 IN 1 D)
     Dates: start: 20110727
  2. CITALOPRAM [Concomitant]
  3. COPEGUS [Concomitant]
  4. PEGASYS [Concomitant]

REACTIONS (5)
  - HAEMORRHOIDS [None]
  - RED BLOOD CELL COUNT DECREASED [None]
  - PERIPHERAL COLDNESS [None]
  - PRURITUS [None]
  - DIARRHOEA [None]
